FAERS Safety Report 23982798 (Version 1)
Quarter: 2024Q2

REPORT INFORMATION
  Report Type: Spontaneous
  Country: TH (occurrence: TH)
  Receive Date: 20240617
  Receipt Date: 20240617
  Transmission Date: 20240715
  Serious: Yes (Hospitalization)
  Sender: FDA-Public Use
  Company Number: TH-BAYER-2024A087152

PATIENT
  Age: 37 Year
  Sex: Female

DRUGS (1)
  1. GADOBUTROL [Suspect]
     Active Substance: GADOBUTROL
     Indication: Magnetic resonance imaging breast
     Dosage: 7.5 ML, ONCE
     Dates: start: 20240614, end: 20240614

REACTIONS (4)
  - Cough [None]
  - Vomiting [None]
  - Chest discomfort [None]
  - Blood pressure decreased [None]

NARRATIVE: CASE EVENT DATE: 20240614
